FAERS Safety Report 8565888-1 (Version None)
Quarter: 2012Q3

REPORT INFORMATION
  Report Type: 
  Country: None (occurrence: None)
  Receive Date: 20120803
  Receipt Date: 20110826
  Transmission Date: 20120928
  Serious: No
  Sender: FDA-Public Use
  Company Number: US-ABBOTT-11P-163-0734903-00

PATIENT
  Sex: Male
  Weight: 82.628 kg

DRUGS (7)
  1. NIASPAN [Suspect]
     Indication: BLOOD CHOLESTEROL INCREASED
     Dosage: AT BEDTIME
     Dates: start: 20110101, end: 20110601
  2. ASPIRIN [Suspect]
     Indication: PRODUCT USED FOR UNKNOWN INDICATION
     Dates: start: 20070101, end: 20110101
  3. DIOVAN [Concomitant]
     Indication: HYPERTENSION
  4. ASPIRIN [Suspect]
     Dates: start: 20110101, end: 20110601
  5. ASPIRIN [Suspect]
  6. NIASPAN [Suspect]
     Indication: LOW DENSITY LIPOPROTEIN INCREASED
     Dosage: AT BEDTIME
     Dates: start: 20110601
  7. NIASPAN [Suspect]
     Indication: HIGH DENSITY LIPOPROTEIN DECREASED
     Dosage: 1500 MG DAILY, AT BEDTIME

REACTIONS (8)
  - PROSTATIC SPECIFIC ANTIGEN INCREASED [None]
  - PRURITUS [None]
  - GASTROINTESTINAL HAEMORRHAGE [None]
  - MELAENA [None]
  - CONTUSION [None]
  - FLUSHING [None]
  - NEPHROLITHIASIS [None]
  - BLOOD URINE PRESENT [None]
